FAERS Safety Report 8696556 (Version 2)
Quarter: 2012Q4

REPORT INFORMATION
  Report Type: 
  Country: US (occurrence: US)
  Receive Date: 20120801
  Receipt Date: 20121101
  Transmission Date: 20130627
  Serious: Yes (Hospitalization)
  Sender: FDA-Public Use
  Company Number: US-BAYER-2012-073888

PATIENT
  Age: 50 Year
  Sex: Female
  Weight: 90.7 kg

DRUGS (4)
  1. OCELLA [Suspect]
     Indication: CONTRACEPTION
     Dosage: UNK
     Dates: start: 20111110, end: 20120313
  2. SAFYRAL [Suspect]
     Indication: CONTRACEPTION
     Dosage: UNK
     Dates: start: 20110531, end: 20111031
  3. TRIAMTERENE AND HYDROCHLOROTHIAZIDE [Concomitant]
     Indication: BLOOD PRESSURE ABNORMAL
     Dosage: UNK
     Dates: start: 2011
  4. NSAID^S [Concomitant]

REACTIONS (9)
  - Deep vein thrombosis [None]
  - Pain [None]
  - Injury [None]
  - General physical health deterioration [None]
  - Anxiety [None]
  - Emotional distress [None]
  - Pain [None]
  - Oedema peripheral [None]
  - Pain in extremity [None]
